FAERS Safety Report 4393512-0 (Version None)
Quarter: 2004Q3

REPORT INFORMATION
  Report Type: 
  Country: None (occurrence: None)
  Receive Date: 20040709
  Receipt Date: 20040608
  Transmission Date: 20050211
  Serious: Yes (Other)
  Sender: FDA-Public Use
  Company Number: PHNU2004DE02085

PATIENT
  Age: 76 Year
  Sex: Male
  Weight: 72 kg

DRUGS (5)
  1. SANDIMMUNE [Suspect]
     Indication: HEART TRANSPLANT
     Dosage: 125MG/DAY
     Route: 048
     Dates: start: 19910401
  2. ACCUPRO [Concomitant]
     Dosage: 10MG/DAY
  3. CALCIUM SANDOZ [Concomitant]
     Dosage: 1 DF, QD
  4. PANKREON FORTE [Concomitant]
     Dosage: 1 DF, QD
  5. NEXIUM [Concomitant]
     Dosage: .5 DF, QD

REACTIONS (3)
  - ARTERIOSCLEROSIS [None]
  - ISCHAEMIA [None]
  - PANCREATITIS [None]
